FAERS Safety Report 8801747 (Version 2)
Quarter: 2015Q2

REPORT INFORMATION
  Report Type: Report from Study
  Country: US (occurrence: US)
  Receive Date: 20120921
  Receipt Date: 20150423
  Transmission Date: 20150821
  Serious: Yes (Death)
  Sender: FDA-Public Use
  Company Number: US-ROCHE-1127095

PATIENT
  Sex: Female
  Weight: 80.36 kg

DRUGS (5)
  1. AVASTIN [Suspect]
     Active Substance: BEVACIZUMAB
     Indication: OVARIAN CANCER
     Route: 042
     Dates: start: 20070601
  2. AVASTIN [Suspect]
     Active Substance: BEVACIZUMAB
     Indication: MALIGNANT NEOPLASM OF UTERINE ADNEXA
     Route: 042
     Dates: start: 20100729
  3. AVASTIN [Suspect]
     Active Substance: BEVACIZUMAB
     Route: 042
     Dates: start: 20100812
  4. TAXOL [Concomitant]
     Active Substance: PACLITAXEL
  5. HEPARIN [Concomitant]
     Active Substance: HEPARIN SODIUM

REACTIONS (8)
  - Constipation [Unknown]
  - Urinary tract infection [Unknown]
  - Death [Fatal]
  - Fatigue [Unknown]
  - Dysuria [Unknown]
  - Nausea [Unknown]
  - Diarrhoea [Unknown]
  - Neuropathy peripheral [Unknown]
